FAERS Safety Report 11753616 (Version 2)
Quarter: 2015Q4

REPORT INFORMATION
  Report Type: Report from Study
  Country: AR (occurrence: AR)
  Receive Date: 20151119
  Receipt Date: 20151208
  Transmission Date: 20160304
  Serious: Yes (Other)
  Sender: FDA-Public Use
  Company Number: PHHY2015AR149204

PATIENT
  Sex: Male

DRUGS (3)
  1. ACLASTA [Suspect]
     Active Substance: ZOLEDRONIC ACID
     Indication: OSTEITIS DEFORMANS
     Dosage: 1 DF, (1 TIME 8 YEARS AGO)
     Route: 065
  2. METFORMIN [Concomitant]
     Active Substance: METFORMIN HYDROCHLORIDE
     Indication: PRODUCT USED FOR UNKNOWN INDICATION
     Dosage: 1 MG, QD
     Route: 065
  3. ACLASTA [Suspect]
     Active Substance: ZOLEDRONIC ACID
     Indication: BLOOD ALKALINE PHOSPHATASE INCREASED

REACTIONS (10)
  - Groin pain [Not Recovered/Not Resolved]
  - Intervertebral disc degeneration [Unknown]
  - Exostosis [Unknown]
  - Pain [Unknown]
  - Abasia [Unknown]
  - Arthropathy [Not Recovered/Not Resolved]
  - Memory impairment [Unknown]
  - Joint dislocation [Unknown]
  - Disturbance in attention [Unknown]
  - Blood alkaline phosphatase increased [Unknown]

NARRATIVE: CASE EVENT DATE: 2009
